FAERS Safety Report 6765209-0 (Version None)
Quarter: 2010Q2

REPORT INFORMATION
  Report Type: 
  Country: None (occurrence: None)
  Receive Date: 20100610
  Receipt Date: 20100610
  Transmission Date: 20101027
  Serious: Yes (Other)
  Sender: FDA-Public Use
  Company Number: None

PATIENT
  Sex: Female
  Weight: 68.0396 kg

DRUGS (2)
  1. CRESTOR [Suspect]
     Indication: BLOOD CHOLESTEROL INCREASED
     Dosage: ONE BEDTIME PO, ABOUT 1 YEAR
     Route: 048
     Dates: start: 20090501, end: 20100601
  2. LYRICA [Suspect]
     Indication: FIBROMYALGIA
     Dosage: ONE TWICE DAILY PO
     Route: 048
     Dates: start: 20100525, end: 20100601

REACTIONS (3)
  - ARTHRALGIA [None]
  - ASTHENIA [None]
  - MYALGIA [None]
